FAERS Safety Report 9924698 (Version 1)
Quarter: 2014Q1

REPORT INFORMATION
  Report Type: Spontaneous
  Country: FR (occurrence: FR)
  Receive Date: 20140226
  Receipt Date: 20140226
  Transmission Date: 20141002
  Serious: Yes (Hospitalization)
  Sender: FDA-Public Use
  Company Number: FR-JNJFOC-20140215094

PATIENT
  Age: 7 Year
  Sex: Male

DRUGS (6)
  1. TOPALGIC [Suspect]
     Indication: MUCOSAL INFLAMMATION
     Route: 048
     Dates: start: 20140123
  2. KIDROLASE [Suspect]
     Indication: ACUTE LYMPHOCYTIC LEUKAEMIA
     Route: 042
     Dates: start: 20140122, end: 20140125
  3. PLITICAN [Concomitant]
     Indication: PROPHYLAXIS OF NAUSEA AND VOMITING
     Route: 048
     Dates: start: 20140122, end: 20140125
  4. VINCRISTINE SULFATE [Concomitant]
     Indication: ACUTE LYMPHOCYTIC LEUKAEMIA
     Route: 042
     Dates: start: 20140122, end: 20140123
  5. BACTRIM [Concomitant]
     Route: 048
     Dates: start: 20131120
  6. ONDANSETRON [Concomitant]
     Indication: PROPHYLAXIS OF NAUSEA AND VOMITING
     Route: 048
     Dates: start: 20140122, end: 20140125

REACTIONS (1)
  - Pancreatitis acute [Recovering/Resolving]
